FAERS Safety Report 9927313 (Version 7)
Quarter: 2015Q3

REPORT INFORMATION
  Report Type: Report from Study
  Country: US (occurrence: US)
  Receive Date: 20140226
  Receipt Date: 20150721
  Transmission Date: 20151125
  Serious: Yes (Hospitalization, Other)
  Sender: FDA-Public Use
  Company Number: US-ALEXION PHARMACEUTICALS INC.-A201400623

PATIENT

DRUGS (5)
  1. SOLIRIS [Suspect]
     Active Substance: ECULIZUMAB
     Indication: PAROXYSMAL NOCTURNAL HAEMOGLOBINURIA
     Dosage: 900 MG, Q2W
     Route: 042
     Dates: start: 20090218
  2. MULTIVITAMINS [Concomitant]
     Active Substance: VITAMINS
     Indication: PRODUCT USED FOR UNKNOWN INDICATION
     Dosage: 1 DF, QD
     Route: 065
  3. VITAMIN B12 [Concomitant]
     Active Substance: CYANOCOBALAMIN
     Indication: PRODUCT USED FOR UNKNOWN INDICATION
     Dosage: 800 MG, UNK
     Route: 065
  4. FOLIC ACID. [Concomitant]
     Active Substance: FOLIC ACID
     Indication: PRODUCT USED FOR UNKNOWN INDICATION
     Dosage: 1 G, QD
     Route: 065
  5. PREDNISONE. [Concomitant]
     Active Substance: PREDNISONE
     Indication: PRODUCT USED FOR UNKNOWN INDICATION
     Dosage: 60 MG, QD
     Route: 065

REACTIONS (35)
  - Headache [Not Recovered/Not Resolved]
  - Musculoskeletal stiffness [Unknown]
  - Haemoglobinuria [Unknown]
  - Vomiting [Unknown]
  - Visual impairment [Unknown]
  - Haemolysis [Unknown]
  - Headache [Recovered/Resolved]
  - Sleep disorder [Unknown]
  - Nausea [Recovered/Resolved]
  - Back pain [Unknown]
  - Ocular icterus [Unknown]
  - Haemolysis [Unknown]
  - Cough [Unknown]
  - Chromaturia [Recovered/Resolved]
  - Sneezing [Unknown]
  - Visual impairment [Recovered/Resolved]
  - Depression [Unknown]
  - Stress [Unknown]
  - Haemolysis [Unknown]
  - Nausea [Unknown]
  - Mood swings [Unknown]
  - Headache [Not Recovered/Not Resolved]
  - Back pain [Unknown]
  - Confusional state [Unknown]
  - Fatigue [Unknown]
  - Chromaturia [Unknown]
  - Blood urine present [Unknown]
  - Abdominal pain [Unknown]
  - Haemolysis [Recovered/Resolved]
  - Vomiting [Recovered/Resolved]
  - Photophobia [Unknown]
  - Nausea [Unknown]
  - Acute abdomen [Unknown]
  - Nausea [Not Recovered/Not Resolved]
  - Pain [Unknown]

NARRATIVE: CASE EVENT DATE: 20140214
